FAERS Safety Report 7691342-5 (Version None)
Quarter: 2011Q3

REPORT INFORMATION
  Report Type: 
  Country: None (occurrence: None)
  Receive Date: 20110818
  Receipt Date: 20110803
  Transmission Date: 20111222
  Serious: Yes (Other)
  Sender: FDA-Public Use
  Company Number: PHHY2011US51343

PATIENT
  Sex: Female

DRUGS (14)
  1. NORVASC [Concomitant]
     Dosage: 5 MG, UNK
  2. PRAVASTATIN [Concomitant]
     Dosage: 20 MG, AT BEDTIME
  3. ALPRAZOLAM [Concomitant]
     Dosage: 2 MG, AT BEDTIME
  4. LORTAB [Concomitant]
     Indication: MUSCULOSKELETAL DISCOMFORT
     Dosage: UNK UKN, UNK
  5. DIOVAN HCT [Suspect]
     Dosage: 1 DF, QD
     Route: 048
  6. TOPROL-XL [Concomitant]
     Dosage: 50 MG, UNK
  7. ASPIRIN [Concomitant]
     Dosage: 81 MG DAILY
  8. MELOXICAM [Concomitant]
     Dosage: UNK UKN, UNK
  9. LORTAB [Concomitant]
     Indication: BURSITIS
  10. CALCIUM AND ERGOCALCIFEROL [Concomitant]
     Dosage: UNK UKN, UNK
  11. VITAMIN B-12 [Concomitant]
     Dosage: UNK UKN, UNK
  12. LEVOTHYROXINE SODIUM [Concomitant]
     Dosage: UNK UKN, UNK
  13. SERTRALINE HYDROCHLORIDE [Concomitant]
     Dosage: UNK UKN, UNK
  14. ALENDRONATE SODIUM [Concomitant]
     Dosage: 35 MG, (ONE WEEKLY IN THE MORNING)

REACTIONS (6)
  - CAROTID ARTERY OCCLUSION [None]
  - MALAISE [None]
  - ATRIOVENTRICULAR BLOCK [None]
  - PNEUMONIA PRIMARY ATYPICAL [None]
  - TRANSIENT ISCHAEMIC ATTACK [None]
  - NASOPHARYNGITIS [None]
